FAERS Safety Report 4965969-5 (Version None)
Quarter: 2006Q2

REPORT INFORMATION
  Report Type: 
  Country: None (occurrence: None)
  Receive Date: 20060403
  Receipt Date: 20060323
  Transmission Date: 20061013
  Serious: Yes (Death)
  Sender: FDA-Public Use
  Company Number: 2006040744

PATIENT
  Age: 73 Year
  Sex: Male

DRUGS (6)
  1. SPIRONOLACTONE [Suspect]
     Indication: ATRIAL FIBRILLATION
     Dosage: 25 MG (25 MG, DAILY INTERVAL: EVERY DAY), ORAL
     Route: 048
     Dates: end: 20040909
  2. DIGOXIN [Suspect]
     Indication: ATRIAL FIBRILLATION
     Dosage: 0.25 MG (0.25 MG, DAILY INTERVAL: EVERY DAY), ORAL
     Route: 048
     Dates: start: 20010814, end: 20040909
  3. FUROSEMIDE [Suspect]
     Indication: CARDIAC FAILURE
     Dosage: 160 MG (80 MG, BID INTERVAL: EVERY DAY), ORAL
     Route: 048
     Dates: start: 20010814, end: 20040909
  4. ZESTRIL [Concomitant]
  5. CARVEDILOL [Concomitant]
  6. WARFARIN SODIUM [Concomitant]

REACTIONS (17)
  - ACTIVATED PARTIAL THROMBOPLASTIN TIME PROLONGED [None]
  - ANURIA [None]
  - BODY TEMPERATURE DECREASED [None]
  - BRADYCARDIA [None]
  - C-REACTIVE PROTEIN INCREASED [None]
  - CARDIAC FAILURE [None]
  - ELECTROCARDIOGRAM QRS COMPLEX PROLONGED [None]
  - GENERAL PHYSICAL HEALTH DETERIORATION [None]
  - HAEMATOCRIT DECREASED [None]
  - HAEMOGLOBIN DECREASED [None]
  - HYPERKALAEMIA [None]
  - HYPOTENSION [None]
  - METABOLIC ACIDOSIS [None]
  - RED BLOOD CELL COUNT DECREASED [None]
  - RENAL FAILURE [None]
  - THERAPEUTIC AGENT TOXICITY [None]
  - WHITE BLOOD CELL COUNT INCREASED [None]
